FAERS Safety Report 4804855-8 (Version None)
Quarter: 2005Q4

REPORT INFORMATION
  Report Type: 
  Country: None (occurrence: None)
  Receive Date: 20051017
  Receipt Date: 20050930
  Transmission Date: 20060501
  Serious: Yes (Other)
  Sender: FDA-Public Use
  Company Number: 12571

PATIENT
  Age: 4 Year
  Sex: 0

DRUGS (2)
  1. MIDAZOLAM [Suspect]
  2. CARBON MONOXIDE [Suspect]

REACTIONS (2)
  - EXPOSURE TO TOXIC AGENT [None]
  - RESPIRATORY FUME INHALATION DISORDER [None]
